FAERS Safety Report 12624432 (Version 1)
Quarter: 2016Q3

REPORT INFORMATION
  Report Type: Report from Study
  Country: US (occurrence: US)
  Receive Date: 20160805
  Receipt Date: 20160805
  Transmission Date: 20161109
  Serious: Yes (Hospitalization, Other)
  Sender: FDA-Public Use
  Company Number: US-ROCHE-769798

PATIENT
  Age: 23 Year
  Sex: Male
  Weight: 51.6 kg

DRUGS (2)
  1. VISMODEGIB [Suspect]
     Active Substance: VISMODEGIB
     Indication: MEDULLOBLASTOMA
     Dosage: 150 MG, QD
     Route: 048
     Dates: start: 20100302, end: 20100329
  2. VISMODEGIB [Suspect]
     Active Substance: VISMODEGIB
     Dosage: 150 MG, QD
     Route: 048
     Dates: start: 20100302, end: 20100329

REACTIONS (16)
  - Hypoglossal nerve disorder [Unknown]
  - Muscular weakness [Unknown]
  - Back pain [Unknown]
  - Pneumonitis [Unknown]
  - Peripheral motor neuropathy [Unknown]
  - Lung infection [Unknown]
  - Dysphagia [Unknown]
  - Nystagmus [Unknown]
  - Aphasia [Unknown]
  - Facial nerve disorder [Unknown]
  - Dysphonia [Unknown]
  - Dyspnoea [Unknown]
  - Seizure [Unknown]
  - Pneumonia aspiration [Recovered/Resolved]
  - Aspiration [Unknown]
  - Glossopharyngeal nerve disorder [Unknown]

NARRATIVE: CASE EVENT DATE: 20100328
